FAERS Safety Report 7137699-5 (Version None)
Quarter: 2010Q4

REPORT INFORMATION
  Report Type: 
  Country: None (occurrence: None)
  Receive Date: 20101103
  Receipt Date: 20100906
  Transmission Date: 20110411
  Serious: Yes (Other)
  Sender: FDA-Public Use
  Company Number: 2010S1000895

PATIENT
  Age: 79 Year
  Sex: Male
  Weight: 90 kg

DRUGS (4)
  1. CUBICIN [Suspect]
     Indication: DIABETIC GANGRENE
     Dosage: 5.6 MG/KG; Q24H; IV
     Route: 042
     Dates: start: 20100623, end: 20100628
  2. CUBICIN [Suspect]
     Indication: WOUND INFECTION STAPHYLOCOCCAL
     Dosage: 5.6 MG/KG; Q24H; IV
     Route: 042
     Dates: start: 20100623, end: 20100628
  3. FUROSEMIDE [Concomitant]
  4. STATIN [Concomitant]

REACTIONS (4)
  - ALANINE AMINOTRANSFERASE INCREASED [None]
  - ASPARTATE AMINOTRANSFERASE INCREASED [None]
  - BLOOD ALKALINE PHOSPHATASE INCREASED [None]
  - GAMMA-GLUTAMYLTRANSFERASE INCREASED [None]
